FAERS Safety Report 25907625 (Version 1)
Quarter: 2025Q4

REPORT INFORMATION
  Report Type: Spontaneous
  Country: US (occurrence: None)
  Receive Date: 20251010
  Receipt Date: 20251010
  Transmission Date: 20260118
  Serious: No
  Sender: FDA-CTU
  Company Number: None

PATIENT
  Age: 66 Year
  Sex: Female

DRUGS (1)
  1. ORENCIA [Suspect]
     Active Substance: ABATACEPT
     Indication: Psoriatic arthropathy
     Dosage: 125 MG/ML WEEKLY SUBCUTANEOUS
     Route: 058
     Dates: start: 20250528, end: 202509

REACTIONS (5)
  - Therapy cessation [None]
  - Depression [None]
  - Affective disorder [None]
  - Swelling [None]
  - Infection [None]

NARRATIVE: CASE EVENT DATE: 20250901
